FAERS Safety Report 6696547-8 (Version None)
Quarter: 2010Q2

REPORT INFORMATION
  Report Type: 
  Country: None (occurrence: None)
  Receive Date: 20100426
  Receipt Date: 20100421
  Transmission Date: 20101027
  Serious: Yes (Death)
  Sender: FDA-Public Use
  Company Number: US-GILEAD-2010-0028548

PATIENT
  Sex: Male

DRUGS (14)
  1. LETAIRIS [Suspect]
     Indication: PULMONARY ARTERIAL HYPERTENSION
     Route: 048
     Dates: start: 20100322
  2. REVATIO [Concomitant]
  3. PERSANTINE [Concomitant]
  4. TRIAMTERENE AND HYDROCHLOROTHIAZIDE [Concomitant]
  5. AMLODIPINE BESYLATE [Concomitant]
  6. ALBUTEROL [Concomitant]
  7. FORADIL [Concomitant]
  8. PATANASE [Concomitant]
  9. PULMICORT [Concomitant]
  10. SPIRIVA [Concomitant]
  11. KLONOPIN [Concomitant]
  12. COQ 10 [Concomitant]
  13. VITAMIN B-12 [Concomitant]
  14. VITAMIN D [Concomitant]

REACTIONS (1)
  - CHRONIC OBSTRUCTIVE PULMONARY DISEASE [None]
